FAERS Safety Report 17592079 (Version 1)
Quarter: 2020Q1

REPORT INFORMATION
  Report Type: Spontaneous
  Country: US (occurrence: US)
  Receive Date: 20200327
  Receipt Date: 20200327
  Transmission Date: 20200409
  Serious: No
  Sender: FDA-Public Use
  Company Number: US-TEVA-2020-US-1212888

PATIENT
  Age: 55 Year
  Sex: Female
  Weight: 65.9 kg

DRUGS (12)
  1. SYNTHROID [Concomitant]
     Active Substance: LEVOTHYROXINE SODIUM
  2. ACIPHEX [Concomitant]
     Active Substance: RABEPRAZOLE SODIUM
  3. QVAR REDIHALER [Suspect]
     Active Substance: BECLOMETHASONE DIPROPIONATE
     Indication: ASTHMA
     Dosage: 1 PUFF TWICE A DAY
     Route: 065
  4. CANDESARTAN. [Concomitant]
     Active Substance: CANDESARTAN
     Indication: BLOOD PRESSURE MEASUREMENT
  5. MAGNESIUM [Concomitant]
     Active Substance: MAGNESIUM
  6. XYZAL [Concomitant]
     Active Substance: LEVOCETIRIZINE DIHYDROCHLORIDE
  7. FISH OIL [Concomitant]
     Active Substance: FISH OIL
  8. LACTATE [Concomitant]
  9. ALBUTEROL. [Concomitant]
     Active Substance: ALBUTEROL
     Dosage: PRN
  10. XHANCE [Concomitant]
     Active Substance: FLUTICASONE PROPIONATE
  11. XANAX [Concomitant]
     Active Substance: ALPRAZOLAM
  12. CRESTOR [Concomitant]
     Active Substance: ROSUVASTATIN CALCIUM

REACTIONS (9)
  - Device malfunction [Unknown]
  - Burning sensation [Unknown]
  - Intentional dose omission [Unknown]
  - Wrong technique in device usage process [Unknown]
  - Product odour abnormal [Unknown]
  - Expired product administered [Unknown]
  - Paraesthesia [Unknown]
  - Drug delivery system malfunction [Unknown]
  - Product taste abnormal [Unknown]
